FAERS Safety Report 7676431-3 (Version None)
Quarter: 2011Q3

REPORT INFORMATION
  Report Type: 
  Country: None (occurrence: None)
  Receive Date: 20110811
  Receipt Date: 20110627
  Transmission Date: 20111222
  Serious: No
  Sender: FDA-Public Use
  Company Number: US-BAYER-2011-055321

PATIENT
  Age: 84 Year
  Sex: Male
  Weight: 196 kg

DRUGS (1)
  1. MAGNEVIST [Suspect]
     Indication: NUCLEAR MAGNETIC RESONANCE IMAGING
     Dosage: 17 ML, UNK
     Route: 042
     Dates: start: 20110627

REACTIONS (2)
  - VOMITING [None]
  - NAUSEA [None]
